FAERS Safety Report 8611237-X (Version None)
Quarter: 2012Q3

REPORT INFORMATION
  Report Type: 
  Country: None (occurrence: None)
  Receive Date: 20120822
  Receipt Date: 20120817
  Transmission Date: 20120928
  Serious: Yes (Other)
  Sender: FDA-Public Use
  Company Number: US-BAYER-2012-086117

PATIENT
  Sex: Female

DRUGS (3)
  1. ALEVE (CAPLET) [Suspect]
     Indication: HEADACHE
     Route: 048
  2. PERCOCET [Concomitant]
  3. ACETAMINOPHEN [Concomitant]

REACTIONS (3)
  - VAGINAL HAEMORRHAGE [None]
  - MENSTRUAL DISORDER [None]
  - HEADACHE [None]
